FAERS Safety Report 5392807-1 (Version None)
Quarter: 2007Q4

REPORT INFORMATION
  Report Type: 
  Country: None (occurrence: None)
  Receive Date: 20070718
  Receipt Date: 20070702
  Transmission Date: 20080405
  Serious: Yes (Life-Threatening, Hospitalization)
  Sender: FDA-Public Use
  Company Number: DSA_30161_2007

PATIENT
  Sex: Male

DRUGS (8)
  1. DILTIAZEM HCL [Suspect]
     Indication: ATRIAL FIBRILLATION
     Dosage: (100 MG QD ORAL)
     Route: 048
     Dates: start: 20070515, end: 20070602
  2. CARVEDILOL [Suspect]
     Dosage: (10 MG BID ORAL)
     Route: 048
  3. CANDESARTAN CILEXETIL [Suspect]
     Dosage: (ORAL)
     Route: 048
  4. WARFARIN SODIUM [Suspect]
     Dosage: (ORAL)
     Route: 048
  5. ALLOZYM (ALLOZYM) [Suspect]
     Dosage: (ORAL)
     Route: 048
  6. JUVELA /00110503/ (JUVELA) (NOT SPECIFIED) [Suspect]
     Dosage: (100 MG TID ORAL)
     Route: 048
  7. NORMONAL (NORMONAL) [Suspect]
     Dosage: (ORAL)
     Route: 048
  8. NORVASC [Suspect]
     Dosage: (ORAL)
     Route: 048

REACTIONS (12)
  - ATRIAL FIBRILLATION [None]
  - ATRIOVENTRICULAR BLOCK [None]
  - BLOOD CREATININE INCREASED [None]
  - BLOOD POTASSIUM INCREASED [None]
  - BRADYCARDIA [None]
  - BUNDLE BRANCH BLOCK LEFT [None]
  - BUNDLE BRANCH BLOCK RIGHT [None]
  - CARDIAC ARREST [None]
  - CONTINUOUS HAEMODIAFILTRATION [None]
  - CONVULSION [None]
  - LOSS OF CONSCIOUSNESS [None]
  - SHOCK [None]
